FAERS Safety Report 4310028-8 (Version None)
Quarter: 2004Q1

REPORT INFORMATION
  Report Type: 
  Country: None (occurrence: None)
  Receive Date: 20040301
  Receipt Date: 20031105
  Transmission Date: 20041129
  Serious: No
  Sender: FDA-Public Use
  Company Number: WAES0308USA00390

PATIENT
  Age: 62 Year
  Sex: Female
  Weight: 64.8644 kg

DRUGS (4)
  1. ZETIA [Suspect]
     Dosage: PO
     Route: 048
  2. LIPITOR [Concomitant]
  3. ZESTRIL [Concomitant]
  4. ASPIRIN [Concomitant]

REACTIONS (1)
  - SKIN DISCOLOURATION [None]
